FAERS Safety Report 4345647-6 (Version None)
Quarter: 2004Q2

REPORT INFORMATION
  Report Type: 
  Country: None (occurrence: None)
  Receive Date: 20040421
  Receipt Date: 20040414
  Transmission Date: 20050107
  Serious: Yes (Death)
  Sender: FDA-Public Use
  Company Number: USA-2004-0014550

PATIENT
  Sex: Male
  Weight: 68.5 kg

DRUGS (9)
  1. MORPHINE SULFATE [Suspect]
  2. HYDROCODONE BITARTRATE [Suspect]
  3. CODEINE (CODEINE) [Suspect]
  4. ACETAMINOPHEN [Suspect]
  5. ALPRAZOLAM [Suspect]
  6. DIAZEPAM [Suspect]
  7. LIDOCAINE [Suspect]
  8. OXAZEPAM [Suspect]
  9. TEMAZEPAM [Suspect]

REACTIONS (14)
  - ATHEROSCLEROSIS [None]
  - CARDIAC ARREST [None]
  - CARDIOMEGALY [None]
  - CHOLELITHIASIS [None]
  - CIRCULATORY COLLAPSE [None]
  - CONVULSION [None]
  - CORONARY ARTERY OCCLUSION [None]
  - FOREIGN BODY ASPIRATION [None]
  - HAEMORRHAGE [None]
  - MULTIPLE DRUG OVERDOSE [None]
  - PULMONARY CONGESTION [None]
  - PULMONARY OEDEMA [None]
  - SUBARACHNOID HAEMORRHAGE [None]
  - VENTRICULAR FIBRILLATION [None]
